FAERS Safety Report 22046500 (Version 1)
Quarter: 2023Q1

REPORT INFORMATION
  Report Type: Spontaneous
  Country: US (occurrence: US)
  Receive Date: 20230228
  Receipt Date: 20230228
  Transmission Date: 20230418
  Serious: No
  Sender: FDA-Public Use
  Company Number: US-ELI_LILLY_AND_COMPANY-US202302007059

PATIENT
  Sex: Female

DRUGS (1)
  1. CYMBALTA [Suspect]
     Active Substance: DULOXETINE HYDROCHLORIDE
     Indication: Pain in extremity
     Dosage: 60 MG, UNKNOWN
     Route: 065

REACTIONS (5)
  - Electric shock sensation [Unknown]
  - Drug ineffective [Unknown]
  - Presyncope [Unknown]
  - Palpitations [Unknown]
  - Insomnia [Unknown]
